FAERS Safety Report 5128439-X (Version None)
Quarter: 2006Q4

REPORT INFORMATION
  Report Type: 
  Country: None (occurrence: None)
  Receive Date: 20061011
  Receipt Date: 20061004
  Transmission Date: 20070319
  Serious: Yes (Other)
  Sender: FDA-Public Use
  Company Number: S06-USA-04122-01

PATIENT
  Age: 40 Year
  Sex: Female

DRUGS (7)
  1. LEXAPRO [Suspect]
     Indication: DEPRESSION
     Dosage: 10 MG QD PO
     Route: 048
     Dates: start: 20040601, end: 20061002
  2. LEXAPRO [Suspect]
     Indication: PANIC ATTACK
     Dosage: 10 MG QD PO
     Route: 048
     Dates: start: 20040601, end: 20061002
  3. LEXAPRO [Suspect]
     Indication: DEPRESSION
     Dosage: 5 MG QD PO
     Route: 048
     Dates: start: 20061003
  4. LEXAPRO [Suspect]
     Indication: PANIC ATTACK
     Dosage: 5 MG QD PO
     Route: 048
     Dates: start: 20061003
  5. ANTIBIOTICS (NOS) [Concomitant]
  6. CELEBREX [Concomitant]
  7. NON-STEROIDAL ANTI-INFLAMMATORIES (NOS) [Concomitant]

REACTIONS (4)
  - MITRAL VALVE INCOMPETENCE [None]
  - MITRAL VALVE PROLAPSE [None]
  - VENTRICULAR EXTRASYSTOLES [None]
  - VENTRICULAR HYPERTROPHY [None]
